FAERS Safety Report 8995411 (Version 1)
Quarter: 2013Q1

REPORT INFORMATION
  Report Type: Spontaneous
  Country: US (occurrence: US)
  Receive Date: 20130103
  Receipt Date: 20130103
  Transmission Date: 20140127
  Serious: No
  Sender: FDA-Public Use
  Company Number: US-ABBOTT-12P-163-0997548-00

PATIENT
  Age: 50 Year
  Sex: Female
  Weight: 63.56 kg

DRUGS (3)
  1. SYNTHROID [Suspect]
     Indication: HYPOTHYROIDISM
     Dates: start: 201209, end: 201210
  2. BUPROPRION XL [Suspect]
     Indication: DEPRESSION
     Dates: start: 201209, end: 201210
  3. FLUOXETINE [Suspect]
     Indication: DEPRESSION
     Dates: start: 201209, end: 201210

REACTIONS (1)
  - Migraine [Recovered/Resolved]
